FAERS Safety Report 10694679 (Version 4)
Quarter: 2017Q3

REPORT INFORMATION
  Report Type: Spontaneous
  Country: US (occurrence: US)
  Receive Date: 20150107
  Receipt Date: 20170724
  Transmission Date: 20171127
  Serious: Yes (Hospitalization)
  Sender: FDA-Public Use
  Company Number: US-BAYER-2015-001445

PATIENT
  Age: 33 Year
  Sex: Female
  Weight: 61.22 kg

DRUGS (3)
  1. DOXYCYCLINE. [Concomitant]
     Active Substance: DOXYCYCLINE
     Dosage: UNK
     Dates: start: 2000
  2. ZYRTEC [Concomitant]
     Active Substance: CETIRIZINE HYDROCHLORIDE
     Dosage: UNK
     Dates: start: 2000
  3. MIRENA [Suspect]
     Active Substance: LEVONORGESTREL
     Indication: MENORRHAGIA
     Dosage: 20 MCG/24HR, CONT
     Route: 015
     Dates: start: 20071120, end: 20130201

REACTIONS (12)
  - Emotional distress [None]
  - Device issue [None]
  - Pain [Recovered/Resolved]
  - Device use error [None]
  - Drug ineffective [None]
  - Depression [None]
  - Menorrhagia [None]
  - Malaise [Recovered/Resolved]
  - Anxiety [None]
  - Embedded device [Recovered/Resolved]
  - Injury [Recovered/Resolved]
  - Malaise [None]

NARRATIVE: CASE EVENT DATE: 200711
